FAERS Safety Report 12741959 (Version 1)
Quarter: 2016Q3

REPORT INFORMATION
  Report Type: Report from Study
  Country: NL (occurrence: NL)
  Receive Date: 20160914
  Receipt Date: 20160914
  Transmission Date: 20161109
  Serious: Yes (Hospitalization, Other)
  Sender: FDA-Public Use
  Company Number: NL-MYLANLABS-2016M1039055

PATIENT

DRUGS (3)
  1. MORPHINE [Suspect]
     Active Substance: MORPHINE
     Indication: ANALGESIC THERAPY
     Dosage: 75 MG MORPHINE IN 24 H.; PCIA PUMP
     Route: 042
  2. OXYCODONE [Suspect]
     Active Substance: OXYCODONE
     Indication: ANALGESIC THERAPY
     Dosage: 2X10MG
     Route: 065
  3. PARACETAMOL [Concomitant]
     Active Substance: ACETAMINOPHEN
     Indication: ANALGESIC THERAPY
     Route: 065

REACTIONS (2)
  - Toxicity to various agents [Unknown]
  - Respiratory depression [Unknown]
